FAERS Safety Report 10071092 (Version 1)
Quarter: 2014Q2

REPORT INFORMATION
  Report Type: Report from Study
  Country: CA (occurrence: CA)
  Receive Date: 20140410
  Receipt Date: 20140410
  Transmission Date: 20141212
  Serious: Yes (Other)
  Sender: FDA-Public Use
  Company Number: CA-JNJFOC-20140404681

PATIENT
  Sex: Female
  Weight: 63.7 kg

DRUGS (5)
  1. REMICADE [Suspect]
     Indication: CROHN^S DISEASE
     Route: 042
     Dates: start: 20090925
  2. CALCIUM [Concomitant]
     Route: 065
  3. VITAMIN D [Concomitant]
     Route: 065
  4. OXAZEPAM [Concomitant]
     Route: 065
  5. HRT - HORMONE REPLACEMENT THERAPY [Concomitant]
     Route: 065

REACTIONS (1)
  - Basal cell carcinoma [Not Recovered/Not Resolved]
